FAERS Safety Report 5468620-3 (Version None)
Quarter: 2007Q3

REPORT INFORMATION
  Report Type: 
  Country: None (occurrence: None)
  Receive Date: 20070926
  Receipt Date: 20070920
  Transmission Date: 20080115
  Serious: Yes (Hospitalization)
  Sender: FDA-Public Use
  Company Number: PL-BAXTER-2007BH007814

PATIENT
  Age: 73 Year
  Sex: Male
  Weight: 98 kg

DRUGS (3)
  1. IMMUNE GLOBULIN INTRAVENOUS (HUMAN) [Suspect]
     Indication: MULTIPLE MYELOMA
     Route: 042
     Dates: start: 20070410, end: 20070410
  2. IMMUNE GLOBULIN INTRAVENOUS (HUMAN) [Suspect]
     Indication: SECONDARY IMMUNODEFICIENCY
     Route: 042
     Dates: start: 20070410, end: 20070410
  3. INTERFERON [Concomitant]
     Indication: MULTIPLE MYELOMA
     Dates: end: 20070404

REACTIONS (2)
  - CHILLS [None]
  - TREMOR [None]
